FAERS Safety Report 5710912-4 (Version None)
Quarter: 2008Q2

REPORT INFORMATION
  Report Type: 
  Country: None (occurrence: None)
  Receive Date: 20080421
  Receipt Date: 20080408
  Transmission Date: 20081010
  Serious: Yes (Death, Hospitalization)
  Sender: FDA-Public Use
  Company Number: US-KINGPHARMUSA00001-K200800406

PATIENT

DRUGS (15)
  1. FLORINEF [Suspect]
  2. WARFARIN SODIUM [Suspect]
  3. METFORMIN HCL [Suspect]
  4. OXYCODONE HYDROCHLORIDE [Suspect]
  5. ENOXAPARIN SODIUM [Suspect]
  6. OXYCONTIN [Suspect]
  7. PAXIL [Suspect]
  8. PREDNISONE [Suspect]
  9. PREVACID [Suspect]
  10. SYNTHROID [Suspect]
  11. TOPAMAX [Suspect]
  12. BEVACIZUMAB [Suspect]
     Dosage: 10 MG/KG, UNK
     Dates: end: 20080108
  13. IRINOTECAN HYDROCHLORIDE [Suspect]
     Dosage: 125 MG/M2, UNK
     Dates: end: 20080108
  14. DECADRON [Suspect]
  15. LEVETIRACETAM [Suspect]
     Dates: end: 20080101

REACTIONS (16)
  - BACK PAIN [None]
  - CEREBRAL HAEMORRHAGE [None]
  - CEREBRAL ISCHAEMIA [None]
  - CEREBROVASCULAR ACCIDENT [None]
  - CONFUSIONAL STATE [None]
  - DEEP VEIN THROMBOSIS [None]
  - DYSARTHRIA [None]
  - ENCEPHALOPATHY [None]
  - GAIT DISTURBANCE [None]
  - HEADACHE [None]
  - MENTAL STATUS CHANGES [None]
  - MUSCULAR WEAKNESS [None]
  - NEUROPATHY PERIPHERAL [None]
  - SOMNOLENCE [None]
  - SPEECH DISORDER [None]
  - WEIGHT DECREASED [None]
